FAERS Safety Report 4310080-X (Version None)
Quarter: 2004Q1

REPORT INFORMATION
  Report Type: 
  Country: None (occurrence: None)
  Receive Date: 20040227
  Receipt Date: 20031217
  Transmission Date: 20041129
  Serious: No
  Sender: FDA-Public Use
  Company Number: FABR-10415

PATIENT
  Age: 22 Year
  Sex: Male
  Weight: 64 kg

DRUGS (4)
  1. FABRAZYME [Suspect]
     Indication: FABRY'S DISEASE
     Dosage: 70 MG Q2WKS IV
     Route: 042
     Dates: start: 20030708
  2. BENADRYL [Concomitant]
  3. MOTRIN [Concomitant]
  4. HYDROCORTISONE [Concomitant]

REACTIONS (3)
  - ANXIETY [None]
  - NAUSEA [None]
  - VOMITING [None]
